FAERS Safety Report 7427968-3 (Version None)
Quarter: 2011Q2

REPORT INFORMATION
  Report Type: 
  Country: None (occurrence: None)
  Receive Date: 20110418
  Receipt Date: 20110418
  Transmission Date: 20111010
  Serious: Yes (Hospitalization)
  Sender: FDA-Public Use
  Company Number: None

PATIENT
  Age: 35 Year
  Sex: Female
  Weight: 65.7716 kg

DRUGS (1)
  1. ALDOMET [Suspect]
     Indication: HYPERTENSION
     Dosage: 1 PILL TWICE DAILY PO
     Route: 048
     Dates: start: 20090217, end: 20090406

REACTIONS (6)
  - DISCOMFORT [None]
  - MALAISE [None]
  - JAUNDICE [None]
  - HEPATOMEGALY [None]
  - ABDOMINAL PAIN [None]
  - HEPATITIS ACUTE [None]
